FAERS Safety Report 7336339-X (Version None)
Quarter: 2011Q1

REPORT INFORMATION
  Report Type: 
  Country: None (occurrence: None)
  Receive Date: 20110307
  Receipt Date: 20110301
  Transmission Date: 20110831
  Serious: Yes (Death, Other)
  Sender: FDA-Public Use
  Company Number: US-AMGEN-USASP2010000512

PATIENT
  Age: 45 Year
  Sex: Female

DRUGS (2)
  1. NPLATE [Suspect]
  2. NPLATE [Suspect]
     Indication: THROMBOCYTOPENIA
     Dosage: 1 A?G/KG, UNK
     Dates: start: 20090317, end: 20090402

REACTIONS (5)
  - RENAL FAILURE [None]
  - DRUG INEFFECTIVE [None]
  - CONVULSION [None]
  - ANTIPHOSPHOLIPID ANTIBODIES [None]
  - SYSTEMIC LUPUS ERYTHEMATOSUS [None]
